FAERS Safety Report 5779249 (Version 2)
Quarter: 2017Q1

REPORT INFORMATION
  Report Type: Spontaneous
  Country: FR (occurrence: FR)
  Receive Date: 20050421
  Receipt Date: 20170321
  Transmission Date: 20170429
  Serious: Yes (Hospitalization)
  Sender: FDA-Public Use
  Company Number: FR-JNJFOC-20050301390

PATIENT
  Age: 39 Year
  Sex: Female
  Weight: 105 kg

DRUGS (16)
  1. REMICADE [Suspect]
     Active Substance: INFLIXIMAB
     Indication: EOSINOPHILIC FASCIITIS
     Dosage: 4TH INFUSION
     Route: 042
     Dates: start: 20050302, end: 20050302
  2. ACTONEL [Concomitant]
     Active Substance: RISEDRONATE SODIUM
     Route: 048
  3. NOCTRAN [Concomitant]
     Active Substance: ACEPROMAZINE MALEATE\ACEPROMETAZINE\CLORAZEPATE DIPOTASSIUM
     Indication: BIPOLAR I DISORDER
     Route: 048
  4. RIVOTRIL [Concomitant]
     Active Substance: CLONAZEPAM
     Indication: BIPOLAR I DISORDER
     Route: 048
  5. PREDNISONE. [Concomitant]
     Active Substance: PREDNISONE
     Indication: EOSINOPHILIC FASCIITIS
     Route: 065
  6. REMICADE [Suspect]
     Active Substance: INFLIXIMAB
     Indication: EOSINOPHILIC FASCIITIS
     Dosage: 2ND INFUSION
     Route: 042
     Dates: start: 20041116, end: 20041116
  7. TERCIAN [Concomitant]
     Active Substance: CYAMEMAZINE
     Indication: BIPOLAR I DISORDER
     Route: 048
  8. REMICADE [Suspect]
     Active Substance: INFLIXIMAB
     Indication: EOSINOPHILIC FASCIITIS
     Dosage: 3RD INFUSION
     Route: 042
     Dates: start: 20041216, end: 20041216
  9. OSTRAM D3 [Concomitant]
     Route: 048
  10. SEROPRAM B [Concomitant]
     Active Substance: CHOLINE\CITALOPRAM HYDROBROMIDE
     Indication: BIPOLAR I DISORDER
     Route: 048
  11. PREDNISONE. [Concomitant]
     Active Substance: PREDNISONE
     Indication: EOSINOPHILIC FASCIITIS
     Route: 065
  12. CORTANCYL [Concomitant]
     Active Substance: PREDNISONE
     Indication: FASCIITIS
     Route: 048
     Dates: start: 200311
  13. REMICADE [Suspect]
     Active Substance: INFLIXIMAB
     Indication: EOSINOPHILIC FASCIITIS
     Dosage: 4TH INFUSION
     Route: 042
     Dates: end: 200504
  14. REMICADE [Suspect]
     Active Substance: INFLIXIMAB
     Indication: EOSINOPHILIC FASCIITIS
     Dosage: 1ST INFUSION
     Route: 042
     Dates: start: 20041102, end: 20041102
  15. DEPAKOTE [Concomitant]
     Active Substance: DIVALPROEX SODIUM
     Route: 048
  16. PREDNISONE. [Concomitant]
     Active Substance: PREDNISONE
     Indication: EOSINOPHILIC FASCIITIS
     Route: 065

REACTIONS (3)
  - Off label use [Unknown]
  - Psoriasis [Recovered/Resolved]
  - Product use issue [Unknown]

NARRATIVE: CASE EVENT DATE: 20041102
